FAERS Safety Report 11738579 (Version 2)
Quarter: 2015Q4

REPORT INFORMATION
  Report Type: Spontaneous
  Country: JP (occurrence: JP)
  Receive Date: 20151113
  Receipt Date: 20151123
  Transmission Date: 20160304
  Serious: Yes (Other)
  Sender: FDA-Public Use
  Company Number: JP-BAXTER-2015BAX060926

PATIENT
  Age: 62 Year
  Sex: Female

DRUGS (8)
  1. ONETAXOTERE [Suspect]
     Active Substance: DOCETAXEL
     Indication: BREAST CANCER
     Route: 041
     Dates: start: 20150825
  2. G-LASTA [Suspect]
     Active Substance: PEGFILGRASTIM
     Indication: BREAST CANCER
     Route: 058
     Dates: start: 20150916
  3. G-LASTA [Suspect]
     Active Substance: PEGFILGRASTIM
     Route: 058
     Dates: start: 20151028
  4. DEXART [Suspect]
     Active Substance: DEXAMETHASONE SODIUM PHOSPHATE
     Indication: BREAST CANCER
     Route: 041
     Dates: start: 20150825
  5. ENDOXAN 1G [Suspect]
     Active Substance: CYCLOPHOSPHAMIDE
     Indication: BREAST CANCER
     Route: 041
     Dates: start: 20150825
  6. PACLITAXEL. [Suspect]
     Active Substance: PACLITAXEL
     Indication: BREAST CANCER
     Dosage: 4TH COMBINATION TC CHEMOTHERAPY
     Route: 065
     Dates: start: 20151027, end: 20151027
  7. CARBOPLATIN. [Suspect]
     Active Substance: CARBOPLATIN
     Indication: BREAST CANCER
     Dosage: 4TH COMBINATION TC CHEMOTHERAPY
     Route: 065
     Dates: start: 20151027, end: 20151027
  8. GRANISETRON [Suspect]
     Active Substance: GRANISETRON
     Indication: BREAST CANCER
     Route: 041
     Dates: start: 20150825

REACTIONS (6)
  - Glaucoma [Unknown]
  - Ocular hyperaemia [Recovering/Resolving]
  - Nausea [Recovered/Resolved]
  - Visual acuity reduced [Unknown]
  - Cataract [Unknown]
  - Vision blurred [Unknown]

NARRATIVE: CASE EVENT DATE: 20151030
